FAERS Safety Report 8065143 (Version 4)
Quarter: 2014Q1

REPORT INFORMATION
  Report Type: Spontaneous
  Country: US (occurrence: US)
  Receive Date: 20110802
  Receipt Date: 20140311
  Transmission Date: 20141002
  Serious: Yes (Hospitalization)
  Sender: FDA-Public Use
  Company Number: US-B.I. PHARMACEUTICALS,INC./RIDGEFIELD-2011-BP-18579BP

PATIENT
  Age: 86 Year
  Sex: Female
  Weight: 68.04 kg

DRUGS (12)
  1. PRADAXA [Suspect]
     Indication: ATRIAL FIBRILLATION
     Dosage: 300 MG
     Route: 048
     Dates: start: 20101119, end: 20110214
  2. DILTIAZEM [Concomitant]
     Indication: ATRIAL FIBRILLATION
     Dosage: 120 MG
     Route: 048
  3. DIOVAN [Concomitant]
     Indication: HYPERTENSION
     Dosage: 40 MG
     Route: 048
  4. SYNTHROID [Concomitant]
     Indication: HYPOTHYROIDISM
     Route: 048
     Dates: start: 200504
  5. DESLORATADINE [Concomitant]
     Indication: MULTIPLE ALLERGIES
     Dosage: 5 MG
     Route: 048
  6. FISH OIL [Concomitant]
     Indication: SUPPLEMENTATION THERAPY
     Dosage: 4000 MG
     Route: 048
     Dates: start: 201103
  7. CLARINEX [Concomitant]
     Indication: SUPPLEMENTATION THERAPY
     Route: 065
     Dates: start: 200709
  8. HYDROCHLOROTHIAZIDE [Concomitant]
     Indication: SUPPLEMENTATION THERAPY
     Route: 065
     Dates: start: 200505
  9. CALCITRIOL [Concomitant]
     Indication: SUPPLEMENTATION THERAPY
     Route: 065
  10. LIODERM PATCH [Concomitant]
     Indication: SUPPLEMENTATION THERAPY
     Route: 065
  11. NITRO [Concomitant]
     Route: 065
  12. NITRO [Concomitant]
     Route: 065

REACTIONS (6)
  - Lower gastrointestinal haemorrhage [Recovered/Resolved]
  - Haemorrhagic stroke [Unknown]
  - Cerebral haemorrhage [Unknown]
  - Myocardial infarction [Recovered/Resolved]
  - Respiratory failure [Unknown]
  - Anaemia [Unknown]
